FAERS Safety Report 5705953-7 (Version None)
Quarter: 2008Q2

REPORT INFORMATION
  Report Type: 
  Country: None (occurrence: None)
  Receive Date: 20080411
  Receipt Date: 20080327
  Transmission Date: 20081010
  Serious: Yes (Hospitalization)
  Sender: FDA-Public Use
  Company Number: 2008BM000044

PATIENT
  Age: 14 Year
  Sex: Male
  Weight: 19 kg

DRUGS (1)
  1. NAGLAZYME [Suspect]
     Indication: MUCOPOLYSACCHARIDOSIS VI
     Dosage: 20 MG QW IV
     Route: 042
     Dates: start: 20071117

REACTIONS (2)
  - DRUG DOSE OMISSION [None]
  - SPINAL CORD COMPRESSION [None]
